FAERS Safety Report 8546886-0 (Version None)
Quarter: 2012Q3

REPORT INFORMATION
  Report Type: 
  Country: None (occurrence: None)
  Receive Date: 20120727
  Receipt Date: 20120326
  Transmission Date: 20120928
  Serious: No
  Sender: FDA-Public Use
  Company Number: US-ASTRAZENECA-2012SE03202

PATIENT
  Age: 37 Year
  Sex: Male
  Weight: 175 kg

DRUGS (11)
  1. BUSPIRONE HCL [Concomitant]
  2. SEROQUEL [Suspect]
     Route: 048
  3. SEROQUEL [Suspect]
     Route: 048
  4. SEROQUEL [Suspect]
     Route: 048
  5. SEROQUEL [Suspect]
     Indication: ANXIETY
     Route: 048
  6. FLUOXETINE HCL [Concomitant]
  7. SEROQUEL [Suspect]
     Indication: DEPRESSION
     Route: 048
  8. SEROQUEL [Suspect]
     Route: 048
  9. SEROQUEL [Suspect]
     Indication: NEURALGIA
     Route: 048
  10. SEROQUEL [Suspect]
     Route: 048
  11. SEROQUEL [Suspect]
     Route: 048

REACTIONS (13)
  - DYSPHAGIA [None]
  - DYSKINESIA [None]
  - CONDITION AGGRAVATED [None]
  - PHARYNGEAL OEDEMA [None]
  - CHOKING [None]
  - AXILLARY MASS [None]
  - INTENTIONAL DRUG MISUSE [None]
  - INSOMNIA [None]
  - ADVERSE DRUG REACTION [None]
  - MALAISE [None]
  - FEAR [None]
  - APHASIA [None]
  - TARDIVE DYSKINESIA [None]
